FAERS Safety Report 9395822 (Version 2)
Quarter: 2013Q3

REPORT INFORMATION
  Report Type: Report from Study
  Country: US (occurrence: US)
  Receive Date: 20130711
  Receipt Date: 20130819
  Transmission Date: 20140515
  Serious: Yes (Hospitalization)
  Sender: FDA-Public Use
  Company Number: US-ABBOTT-13P-163-1069317-00

PATIENT
  Age: 70 Year
  Sex: Female

DRUGS (30)
  1. HUMIRA [Suspect]
     Indication: PSORIATIC ARTHROPATHY
     Dates: start: 20120828
  2. HUMIRA [Suspect]
  3. ZITHROMYCIN [Suspect]
     Indication: PRODUCT USED FOR UNKNOWN INDICATION
     Route: 048
  4. ANTIBIOTICS [Suspect]
     Indication: PRODUCT USED FOR UNKNOWN INDICATION
     Route: 042
  5. NORVASC [Concomitant]
     Indication: CARDIAC DISORDER
  6. POTASSIUM [Concomitant]
     Indication: PRODUCT USED FOR UNKNOWN INDICATION
  7. MECLIZINE [Concomitant]
     Indication: DIZZINESS
  8. LOMOTIL [Concomitant]
     Indication: DIARRHOEA
     Dosage: 2.5 MG UP TO FOUR TIMES DAILY
  9. INDERAL [Concomitant]
     Indication: HYPERTENSION
  10. ZOCOR [Concomitant]
     Indication: BLOOD CHOLESTEROL INCREASED
  11. HALCION [Concomitant]
     Indication: SLEEP DISORDER THERAPY
     Dates: end: 201305
  12. XANAX [Concomitant]
     Indication: PRODUCT USED FOR UNKNOWN INDICATION
     Dosage: AT NIGHT
     Dates: end: 201305
  13. DEMEROL [Concomitant]
     Indication: PAIN
  14. PHENERGAN [Concomitant]
     Indication: NAUSEA
  15. ALIGN PROBIOTIC [Concomitant]
     Indication: PRODUCT USED FOR UNKNOWN INDICATION
  16. EPI PEN [Concomitant]
     Indication: PAIN
  17. EPI PEN [Concomitant]
     Indication: ARTHROPOD BITE
  18. LASIX [Concomitant]
     Indication: OEDEMA PERIPHERAL
     Dosage: 40/80 MG
  19. VITAMIN B12 [Concomitant]
     Indication: BLOOD TEST
     Route: 050
  20. ZINC [Concomitant]
     Indication: PRODUCT USED FOR UNKNOWN INDICATION
  21. FOLIC ACID [Concomitant]
     Indication: PRODUCT USED FOR UNKNOWN INDICATION
  22. VITAMIN D3 [Concomitant]
     Indication: VITAMIN SUPPLEMENTATION
  23. CALCIUM [Concomitant]
     Indication: MINERAL SUPPLEMENTATION
  24. MAGNESIUM [Concomitant]
     Indication: SUPPLEMENTATION THERAPY
  25. VYVANSE [Concomitant]
     Indication: PRODUCT USED FOR UNKNOWN INDICATION
  26. ARICEPT [Concomitant]
     Indication: DEMENTIA ALZHEIMER^S TYPE
     Dosage: 5 MG IN AM AND 10 MG AT BEDTIME
  27. RESTORIL [Concomitant]
     Indication: INSOMNIA
     Dates: start: 201305
  28. CO Q-10 [Concomitant]
     Indication: PRODUCT USED FOR UNKNOWN INDICATION
  29. TYCONOGONOL [Concomitant]
     Indication: ANTIOXIDANT THERAPY
  30. STEROIDS [Concomitant]
     Indication: PRODUCT USED FOR UNKNOWN INDICATION

REACTIONS (25)
  - Emphysema [Recovering/Resolving]
  - Chronic obstructive pulmonary disease [Recovering/Resolving]
  - Cough [Recovering/Resolving]
  - Wheezing [Recovering/Resolving]
  - Insomnia [Recovering/Resolving]
  - Asthma [Recovering/Resolving]
  - Psoriasis [Unknown]
  - Arthralgia [Unknown]
  - Back pain [Unknown]
  - Head injury [Unknown]
  - Upper respiratory tract infection [Recovering/Resolving]
  - Fall [Unknown]
  - Vomiting [Unknown]
  - Oesophageal ulcer [Unknown]
  - Gastric ulcer [Unknown]
  - Dyspnoea [Recovering/Resolving]
  - Sleep apnoea syndrome [Unknown]
  - Anxiety [Unknown]
  - Depression [Unknown]
  - Oral candidiasis [Unknown]
  - Vulvovaginal mycotic infection [Unknown]
  - Diarrhoea [Unknown]
  - Psoriasis [Not Recovered/Not Resolved]
  - Fall [Unknown]
  - Excoriation [Unknown]
